FAERS Safety Report 19998763 (Version 3)
Quarter: 2022Q1

REPORT INFORMATION
  Report Type: Spontaneous
  Country: US (occurrence: None)
  Receive Date: 20211027
  Receipt Date: 20220201
  Transmission Date: 20220423
  Serious: Yes (Other)
  Sender: FDA-Public Use
  Company Number: US-ROCHE-2740331

PATIENT
  Sex: Male

DRUGS (3)
  1. COTELLIC [Suspect]
     Active Substance: COBIMETINIB
     Indication: Erdheim-Chester disease
     Dosage: DAY 1 AND DAY 21
     Route: 048
     Dates: start: 202012
  2. COTELLIC [Suspect]
     Active Substance: COBIMETINIB
     Indication: Histiocytic sarcoma
     Dosage: TAKE 3 TABLET(S) BY MOUTH FOR 21 DAYS THEN TAKE 7 DAYS OFF
     Route: 048
  3. COTELLIC [Suspect]
     Active Substance: COBIMETINIB
     Indication: Histiocytosis

REACTIONS (4)
  - Intentional product use issue [Unknown]
  - Off label use [Unknown]
  - No adverse event [Unknown]
  - Atrial fibrillation [Unknown]
